FAERS Safety Report 7275811-8 (Version None)
Quarter: 2011Q1

REPORT INFORMATION
  Report Type: 
  Country: None (occurrence: None)
  Receive Date: 20110204
  Receipt Date: 20110120
  Transmission Date: 20110831
  Serious: Yes (Other)
  Sender: FDA-Public Use
  Company Number: ES-BAYER-200935412GPV

PATIENT
  Sex: Male

DRUGS (4)
  1. NEXAVAR [Suspect]
     Indication: HEPATIC NEOPLASM MALIGNANT
     Dosage: 400 MG, BID
     Route: 048
     Dates: start: 20090716, end: 20091002
  2. PROPRANOLOL [Concomitant]
     Indication: HAEMORRHAGE PROPHYLAXIS
     Dosage: 280 MG (DAILY DOSE), , ORAL
     Route: 048
  3. INSULIN [Concomitant]
     Indication: DIABETES MELLITUS
     Route: 058
  4. ISOSORBIDE MONONITRATE [Concomitant]
     Indication: HAEMORRHAGE PROPHYLAXIS
     Dosage: 40 MG (DAILY DOSE), , ORAL
     Route: 048

REACTIONS (6)
  - ERYTHEMA [None]
  - INDURATION [None]
  - MYALGIA [None]
  - WALKING DISABILITY [None]
  - PAIN IN EXTREMITY [None]
  - MYOSITIS [None]
